FAERS Safety Report 19678416 (Version 1)
Quarter: 2021Q3

REPORT INFORMATION
  Report Type: Spontaneous
  Country: US (occurrence: US)
  Receive Date: 20210809
  Receipt Date: 20210809
  Transmission Date: 20211014
  Serious: No
  Sender: FDA-Public Use
  Company Number: US-SA-2021SA262438

PATIENT
  Age: 42 Year
  Sex: Female

DRUGS (4)
  1. CHILDREN VITAMIN [Concomitant]
     Dosage: UNK
  2. ALLERGY RELIEF MEDICINE [Concomitant]
     Dosage: UNK
  3. DUPIXENT [Suspect]
     Active Substance: DUPILUMAB
     Indication: DERMATITIS ATOPIC
     Dosage: 300 MG, QOW
     Route: 058
     Dates: start: 20210506
  4. ZESTORETIC [Concomitant]
     Active Substance: HYDROCHLOROTHIAZIDE\LISINOPRIL
     Dosage: UNK

REACTIONS (1)
  - Dermatitis atopic [Not Recovered/Not Resolved]

NARRATIVE: CASE EVENT DATE: 202107
